FAERS Safety Report 25875726 (Version 1)
Quarter: 2025Q4

REPORT INFORMATION
  Report Type: Spontaneous
  Country: US (occurrence: US)
  Receive Date: 20251003
  Receipt Date: 20251003
  Transmission Date: 20260118
  Serious: No
  Sender: SANOFI AVENTIS
  Company Number: US-SA-2025SA292357

PATIENT
  Age: 54 Year
  Sex: Female

DRUGS (2)
  1. DUPIXENT [Suspect]
     Active Substance: DUPILUMAB
     Indication: Dermatitis atopic
     Dosage: 300 MG, QOW
     Route: 058
     Dates: start: 202505, end: 20250829
  2. DUPIXENT [Suspect]
     Active Substance: DUPILUMAB
     Indication: Scleroderma

REACTIONS (9)
  - Infection [Unknown]
  - Sneezing [Recovered/Resolved]
  - Urinary incontinence [Unknown]
  - Pruritus [Recovered/Resolved]
  - Skin swelling [Not Recovered/Not Resolved]
  - Rebound effect [Not Recovered/Not Resolved]
  - Feeling cold [Recovered/Resolved]
  - Product use in unapproved indication [Unknown]
  - Drug effective for unapproved indication [Unknown]

NARRATIVE: CASE EVENT DATE: 20250101
